FAERS Safety Report 10182622 (Version 1)
Quarter: 2014Q2

REPORT INFORMATION
  Report Type: Spontaneous
  Country: PL (occurrence: None)
  Receive Date: 20140516
  Receipt Date: 20140516
  Transmission Date: 20141212
  Serious: Yes (Other)
  Sender: FDA-Public Use
  Company Number: 2014P1004004

PATIENT
  Age: 62 Year
  Sex: Female

DRUGS (3)
  1. DONEPEZIL [Suspect]
     Indication: DEMENTIA ALZHEIMER^S TYPE
  2. PARACETAMOL [Concomitant]
  3. ASPIRIN [Concomitant]

REACTIONS (21)
  - Somatoform disorder [None]
  - Headache [None]
  - Abdominal pain upper [None]
  - Decreased appetite [None]
  - Body temperature increased [None]
  - Blood sodium increased [None]
  - White blood cell count increased [None]
  - Neutrophil count increased [None]
  - Bedridden [None]
  - Dementia [None]
  - Anxiety [None]
  - Consciousness fluctuating [None]
  - Disturbance in attention [None]
  - Hallucination [None]
  - Insomnia [None]
  - Delirium [None]
  - Infection [None]
  - Disorientation [None]
  - Agitation [None]
  - Cognitive disorder [None]
  - Immobile [None]
